FAERS Safety Report 16372461 (Version 2)
Quarter: 2019Q2

REPORT INFORMATION
  Report Type: Spontaneous
  Country: US (occurrence: US)
  Receive Date: 20190530
  Receipt Date: 20190613
  Transmission Date: 20190711
  Serious: Yes (Other)
  Sender: FDA-Public Use
  Company Number: US-AKORN PHARMACEUTICALS-2019AKN01131

PATIENT
  Age: 13 Year
  Sex: Female
  Weight: 55.78 kg

DRUGS (7)
  1. MYORISAN [Suspect]
     Active Substance: ISOTRETINOIN
     Indication: ACNE
     Dosage: 40 MG, 1X/DAY
     Route: 048
     Dates: start: 20190205, end: 20190305
  2. IBUPROFEN. [Suspect]
     Active Substance: IBUPROFEN
     Dosage: 20 DOSAGE UNITS, ONCE
     Dates: start: 20190516, end: 20190516
  3. MYORISAN [Suspect]
     Active Substance: ISOTRETINOIN
     Indication: ACNE
     Dosage: 30 MG, 2X/DAY
     Dates: start: 20190314, end: 20190516
  4. NORGESTIMATE; ETHINYL ESTRADIOL [Concomitant]
     Active Substance: ETHINYL ESTRADIOL\NORGESTIMATE
  5. TRIAMCINOLONE ACETONIDE 0.1% [Concomitant]
     Active Substance: TRIAMCINOLONE ACETONIDE
  6. ALLEGRA [Concomitant]
     Active Substance: FEXOFENADINE HYDROCHLORIDE
  7. ALEVE [Suspect]
     Active Substance: NAPROXEN SODIUM
     Dosage: 30 DOSAGE UNITS, ONCE
     Dates: start: 20190516, end: 20190516

REACTIONS (4)
  - Off label use [Recovered/Resolved]
  - Intentional overdose [Recovered/Resolved]
  - Suicide attempt [Recovered/Resolved]
  - Intentional self-injury [Unknown]

NARRATIVE: CASE EVENT DATE: 20190205
